FAERS Safety Report 14218394 (Version 5)
Quarter: 2018Q2

REPORT INFORMATION
  Report Type: Report from Study
  Country: US (occurrence: US)
  Receive Date: 20171123
  Receipt Date: 20180522
  Transmission Date: 20180711
  Serious: Yes (Other)
  Sender: FDA-Public Use
  Company Number: US-JNJFOC-20151211267

PATIENT
  Age: 76 Year
  Sex: Male

DRUGS (16)
  1. IMBRUVICA [Suspect]
     Active Substance: IBRUTINIB
     Indication: NON-HODGKIN^S LYMPHOMA
     Route: 048
     Dates: start: 20150910, end: 201611
  2. IMBRUVICA [Suspect]
     Active Substance: IBRUTINIB
     Indication: NON-HODGKIN^S LYMPHOMA
     Route: 048
     Dates: start: 201611, end: 20170420
  3. SIMVASTATIN. [Concomitant]
     Active Substance: SIMVASTATIN
     Indication: BLOOD CHOLESTEROL
     Dosage: QD
  4. IMBRUVICA [Suspect]
     Active Substance: IBRUTINIB
     Indication: NON-HODGKIN^S LYMPHOMA
     Route: 048
     Dates: start: 20170428, end: 2017
  5. IMBRUVICA [Suspect]
     Active Substance: IBRUTINIB
     Indication: NON-HODGKIN^S LYMPHOMA
     Route: 048
     Dates: start: 2017
  6. RAMIPRIL. [Concomitant]
     Active Substance: RAMIPRIL
     Indication: HYPERTENSION
  7. IMBRUVICA [Suspect]
     Active Substance: IBRUTINIB
     Indication: CHRONIC LYMPHOCYTIC LEUKAEMIA
     Route: 048
     Dates: start: 20170428, end: 2017
  8. ASPIRIN. [Concomitant]
     Active Substance: ASPIRIN
  9. FINASTERIDE. [Concomitant]
     Active Substance: FINASTERIDE
  10. IMBRUVICA [Suspect]
     Active Substance: IBRUTINIB
     Indication: CHRONIC LYMPHOCYTIC LEUKAEMIA
     Route: 048
     Dates: start: 201611, end: 20170420
  11. IMBRUVICA [Suspect]
     Active Substance: IBRUTINIB
     Indication: NON-HODGKIN^S LYMPHOMA
     Route: 048
     Dates: start: 201710, end: 2017
  12. FOLIC ACID. [Concomitant]
     Active Substance: FOLIC ACID
  13. IMBRUVICA [Suspect]
     Active Substance: IBRUTINIB
     Indication: CHRONIC LYMPHOCYTIC LEUKAEMIA
     Route: 048
     Dates: start: 20150910, end: 201611
  14. IMBRUVICA [Suspect]
     Active Substance: IBRUTINIB
     Indication: CHRONIC LYMPHOCYTIC LEUKAEMIA
     Route: 048
     Dates: start: 2017
  15. IMBRUVICA [Suspect]
     Active Substance: IBRUTINIB
     Indication: CHRONIC LYMPHOCYTIC LEUKAEMIA
     Route: 048
     Dates: start: 201710, end: 2017
  16. COENZYME Q10 [Concomitant]
     Active Substance: UBIDECARENONE
     Indication: SUPPLEMENTATION THERAPY
     Dosage: QD

REACTIONS (30)
  - Haemorrhage [Not Recovered/Not Resolved]
  - Blood immunoglobulin G decreased [Unknown]
  - Hypoacusis [Unknown]
  - Laceration [Recovered/Resolved]
  - Blood pressure increased [Recovering/Resolving]
  - Melanocytic naevus [Unknown]
  - Pollakiuria [Unknown]
  - Impaired healing [Unknown]
  - Fall [Unknown]
  - Productive cough [Not Recovered/Not Resolved]
  - Musculoskeletal chest pain [Unknown]
  - Nail disorder [Not Recovered/Not Resolved]
  - Blood viscosity decreased [Unknown]
  - Upper respiratory tract infection [Unknown]
  - Skin haemorrhage [Unknown]
  - Peripheral swelling [Unknown]
  - Polyp [Unknown]
  - Nasopharyngitis [Recovered/Resolved]
  - Platelet count decreased [Unknown]
  - Blood blister [Not Recovered/Not Resolved]
  - Tooth extraction [Unknown]
  - Onychoclasis [Not Recovered/Not Resolved]
  - Contusion [Recovered/Resolved]
  - Haemoglobin decreased [Unknown]
  - Scratch [Unknown]
  - Muscle spasms [Recovering/Resolving]
  - Lymphocyte percentage decreased [Unknown]
  - Sinusitis [Not Recovered/Not Resolved]
  - Dyspnoea [Not Recovered/Not Resolved]
  - Rash macular [Unknown]

NARRATIVE: CASE EVENT DATE: 2015
